FAERS Safety Report 9665431 (Version 1)
Quarter: 2013Q4

REPORT INFORMATION
  Report Type: Spontaneous
  Country: US (occurrence: None)
  Receive Date: 20131031
  Receipt Date: 20131031
  Transmission Date: 20140711
  Serious: No
  Sender: FDA-Public Use
  Company Number: None

PATIENT
  Age: 75 Year
  Sex: Male
  Weight: 81.65 kg

DRUGS (12)
  1. FENOFIBRIC ACID [Suspect]
     Indication: BLOOD TRIGLYCERIDES INCREASED
     Dosage: 1 PER DAY 1
     Route: 048
     Dates: start: 20130927, end: 20130928
  2. FENOFIBRIC ACID [Suspect]
     Indication: CHRONIC OBSTRUCTIVE PULMONARY DISEASE
     Dosage: 1 PER DAY 1
     Route: 048
     Dates: start: 20130927, end: 20130928
  3. FENOFIBRIC ACID [Suspect]
     Indication: BLOOD CHOLESTEROL INCREASED
     Dosage: 1 PER DAY 1
     Route: 048
     Dates: start: 20130927, end: 20130928
  4. FENOFIBRIC ACID [Suspect]
     Indication: HYPERTENSION
     Dosage: 1 PER DAY 1
     Route: 048
     Dates: start: 20130927, end: 20130928
  5. SYMBICORT [Concomitant]
  6. SPRIVA [Concomitant]
  7. TRIAMTERENE-HCTZ [Concomitant]
  8. RANITIDINE [Concomitant]
  9. ATORVASTATIN [Concomitant]
  10. CENTRUM SILVER [Concomitant]
  11. MUCOS RELIEF [Concomitant]
  12. GAS RELIEF [Concomitant]

REACTIONS (2)
  - Vomiting [None]
  - Faeces discoloured [None]
